FAERS Safety Report 6296230-7 (Version None)
Quarter: 2009Q3

REPORT INFORMATION
  Report Type: 
  Country: None (occurrence: None)
  Receive Date: 20090804
  Receipt Date: 20090724
  Transmission Date: 20100115
  Serious: Yes (Other)
  Sender: FDA-Public Use
  Company Number: FR-PFIZER INC-2009248683

PATIENT
  Age: 40 Year

DRUGS (9)
  1. HYDROXYZINE HCL [Suspect]
     Dosage: 25 MG, ONCE
     Route: 048
     Dates: start: 20090708, end: 20090708
  2. TRILEPTAL [Suspect]
     Dosage: 300 MG, ONCE
     Route: 048
     Dates: start: 20090708, end: 20090708
  3. URBANYL [Suspect]
     Dosage: 10 MG, ONCE
     Route: 048
     Dates: start: 20090708, end: 20090708
  4. RISPERDAL [Suspect]
     Dosage: 3 MG, ONCE
     Route: 048
     Dates: start: 20090708, end: 20090708
  5. AUGMENTIN [Suspect]
     Dosage: 1 G, ONCE
     Route: 048
     Dates: start: 20090708, end: 20090708
  6. MOPRAL [Suspect]
     Dosage: 1DF, ONCE
     Route: 048
     Dates: start: 20090708, end: 20090708
  7. MOPRAL [Suspect]
     Dosage: UNK
     Route: 048
  8. LAMOTRIGINE [Concomitant]
  9. DEPAKENE [Concomitant]

REACTIONS (6)
  - DRUG DISPENSING ERROR [None]
  - DRUG INTERACTION [None]
  - HYPOTENSION [None]
  - HYPOTHERMIA [None]
  - MEDICATION ERROR [None]
  - SOMNOLENCE [None]
